FAERS Safety Report 10434701 (Version 1)
Quarter: 2014Q2

REPORT INFORMATION
  Report Type: Spontaneous
  Country: US (occurrence: None)
  Receive Date: 20140530
  Receipt Date: 20140530
  Transmission Date: 20141212
  Serious: Yes (Hospitalization)
  Sender: FDA-Public Use
  Company Number: 2012032306

PATIENT
  Sex: Female
  Weight: 54.89 kg

DRUGS (27)
  1. HIZENTRA (IMMUNOGLOBULIN HUMAN NORMAL) [Suspect]
     Indication: IMMUNODEFICIENCY COMMON VARIABLE
     Dosage: 2 X / WEEK , 4 GM ON 1-4 SITES OVER 1-2 HOURS SUBCUTANEOUS )
  2. ENABLEX (DARIFENACIN) [Concomitant]
  3. POTASSIUM C1 ER (POTASSIUM CHLORIDE) [Concomitant]
  4. LORAZEPAM [Concomitant]
  5. LEVOTHYROXINE [Concomitant]
  6. TOPAMAX (TOPIRAMATE) [Concomitant]
  7. DIPHENHYDRAMINE (DIPHENHYDRAMINE) [Concomitant]
  8. LIDOCAINE / PRILOCAINE (EMLA ) [Concomitant]
  9. EPI-PEN (EPINEPHRINE) [Concomitant]
  10. GEODON (ZIPRASIDONE HYDROCHLORIDE) [Concomitant]
  11. ZOLOFT (SERTRALINE) [Concomitant]
  12. SUMATRIPTAN [Suspect]
  13. PRILOSEC (OMEPRAZOLE) [Concomitant]
  14. VITAMIN D3 (COLCALCIFEROL) [Concomitant]
  15. QVAR (BECLOMETHASONE DIPROPIONATE) [Concomitant]
  16. VITAMI N B100 (VITAMIN-B-KOMPLEX STANDARD) [Concomitant]
  17. SYMBICORT (BUDESONIDE W/ FORMOTEROL FUMARATE) [Concomitant]
  18. TYLENOL (PARACETAMOL) [Concomitant]
  19. MULTIVITAMINS [Concomitant]
  20. CALCIUM [Concomitant]
  21. ZANTAC (RANITADINE HYDROCHLORIDE) [Concomitant]
  22. ZITHROMAX (AZITHROMYCIN) [Concomitant]
  23. BUTALB-CAFF-ACETA-CODEINE) FIORICET W/CODEINE) [Concomitant]
  24. TRAZODONE [Concomitant]
  25. ENABLEX (DARIFENACIN) [Concomitant]
  26. ABILIFY (ARIPIPRAZOLE) [Concomitant]
  27. VIIBRYD (ALL OTHER THERAPEUTIC PRODUCTS) [Concomitant]

REACTIONS (3)
  - Migraine [None]
  - Headache [None]
  - Infusion site pruritus [None]
